FAERS Safety Report 13671792 (Version 1)
Quarter: 2017Q2

REPORT INFORMATION
  Report Type: Spontaneous
  Country: FR (occurrence: FR)
  Receive Date: 20170620
  Receipt Date: 20170620
  Transmission Date: 20170830
  Serious: Yes (Other)
  Sender: FDA-Public Use
  Company Number: FR-BAYER-2017-114027

PATIENT
  Age: 40 Year
  Sex: Female

DRUGS (1)
  1. MIRENA [Suspect]
     Active Substance: LEVONORGESTREL
     Indication: CONTRACEPTION
     Dosage: 20 MCG/24HR, CONT
     Route: 015
     Dates: start: 20150309, end: 20170522

REACTIONS (9)
  - Irritability [Recovering/Resolving]
  - Adnexa uteri pain [Recovering/Resolving]
  - Headache [Unknown]
  - Abdominal pain [Recovering/Resolving]
  - Nausea [Unknown]
  - Abdominal distension [Recovering/Resolving]
  - Vaginal haemorrhage [Unknown]
  - Vertigo [Unknown]
  - Weight increased [Recovering/Resolving]

NARRATIVE: CASE EVENT DATE: 201504
